FAERS Safety Report 13644752 (Version 1)
Quarter: 2017Q2

REPORT INFORMATION
  Report Type: Spontaneous
  Country: US (occurrence: US)
  Receive Date: 20170612
  Receipt Date: 20170612
  Transmission Date: 20170830
  Serious: No
  Sender: FDA-Public Use
  Company Number: US-ROCHE-1376861

PATIENT
  Sex: Male

DRUGS (1)
  1. XELODA [Suspect]
     Active Substance: CAPECITABINE
     Indication: PANCREATIC CARCINOMA
     Dosage: 4 TABS IN MORNING AND 3 TABS IN EVENING.
     Route: 048
     Dates: start: 20140318

REACTIONS (2)
  - Nausea [Unknown]
  - Abdominal pain upper [Unknown]
